FAERS Safety Report 14034510 (Version 1)
Quarter: 2017Q4

REPORT INFORMATION
  Report Type: Spontaneous
  Country: US (occurrence: US)
  Receive Date: 20171003
  Receipt Date: 20171003
  Transmission Date: 20180321
  Serious: No
  Sender: FDA-Public Use
  Company Number: US-DRREDDYS-USA/USA/17/0092040

PATIENT
  Sex: Male

DRUGS (1)
  1. AMOXICILLIN W/CLAVULANATE POTASSIUM TABLETS [Suspect]
     Active Substance: AMOXICILLIN\CLAVULANATE POTASSIUM
     Indication: EYE INFECTION
     Route: 048
     Dates: start: 20170705

REACTIONS (1)
  - Night sweats [Recovered/Resolved]
